FAERS Safety Report 8596625-2 (Version None)
Quarter: 2012Q3

REPORT INFORMATION
  Report Type: 
  Country: None (occurrence: None)
  Receive Date: 20120815
  Receipt Date: 20120803
  Transmission Date: 20120928
  Serious: Yes (Hospitalization)
  Sender: FDA-Public Use
  Company Number: FR-CELGENEUS-056-21880-12080568

PATIENT
  Sex: Male

DRUGS (8)
  1. REVLIMID [Suspect]
     Dosage: 30 MILLIGRAM
     Route: 048
     Dates: start: 20111030, end: 20120130
  2. VALACYCLOVIR HYDROCHLORIDE [Suspect]
     Dosage: 1000 MILLIGRAM
     Route: 048
     Dates: start: 20110701, end: 20120130
  3. LEUCOVORIN CALCIUM [Suspect]
     Dosage: 10.7143 MILLIGRAM
     Route: 048
     Dates: start: 20110701, end: 20120130
  4. OMEPRAZOLE [Suspect]
     Dosage: 20 MILLIGRAM
     Route: 048
     Dates: start: 20110701, end: 20120130
  5. ASPIRIN [Suspect]
     Dosage: 75 MILLIGRAM
     Route: 048
     Dates: start: 20111222, end: 20120130
  6. BACTRIM [Suspect]
     Route: 048
     Dates: start: 20110701, end: 20120130
  7. REVLIMID [Suspect]
     Route: 048
     Dates: start: 20120503, end: 20120503
  8. PHENOXYMETHYL PENICILLIN [Suspect]
     Dosage: 2000000 IU (INTERNATIONAL UNIT)
     Route: 048
     Dates: start: 20110701, end: 20120130

REACTIONS (1)
  - DRUG RASH WITH EOSINOPHILIA AND SYSTEMIC SYMPTOMS [None]
